FAERS Safety Report 9686025 (Version 1)
Quarter: 2013Q4

REPORT INFORMATION
  Report Type: Spontaneous
  Country: None (occurrence: US)
  Receive Date: 20131113
  Receipt Date: 20131113
  Transmission Date: 20140711
  Serious: No
  Sender: FDA-Public Use
  Company Number: US-ALLERGAN-1301084US

PATIENT
  Age: 75 Year
  Sex: Female

DRUGS (2)
  1. COMBIGAN[R] [Suspect]
     Indication: OPEN ANGLE GLAUCOMA
     Dosage: 1 GTT, BID
     Route: 047
     Dates: start: 201202
  2. TRAVATAN Z [Suspect]
     Indication: GLAUCOMA
     Dosage: 1 GTT, QHS
     Route: 047
     Dates: start: 201202

REACTIONS (2)
  - Growth of eyelashes [Not Recovered/Not Resolved]
  - Eyelash thickening [Not Recovered/Not Resolved]
